FAERS Safety Report 5124867-7 (Version None)
Quarter: 2006Q4

REPORT INFORMATION
  Report Type: 
  Country: None (occurrence: None)
  Receive Date: 20061011
  Receipt Date: 20061004
  Transmission Date: 20070319
  Serious: Yes (Hospitalization)
  Sender: FDA-Public Use
  Company Number: US-ROCHE-466151

PATIENT
  Age: 48 Year
  Sex: Male

DRUGS (3)
  1. PEGASYS [Suspect]
     Route: 058
     Dates: start: 20060721, end: 20060928
  2. RIBAVIRIN [Suspect]
     Route: 048
     Dates: start: 20060721, end: 20060928
  3. HUMALOG [Concomitant]
     Route: 058

REACTIONS (4)
  - ASTHENIA [None]
  - DIABETIC COMA [None]
  - INSOMNIA [None]
  - LOSS OF CONSCIOUSNESS [None]
